FAERS Safety Report 7921315-6 (Version None)
Quarter: 2011Q4

REPORT INFORMATION
  Report Type: 
  Country: None (occurrence: None)
  Receive Date: 20111117
  Receipt Date: 20111107
  Transmission Date: 20120403
  Serious: Yes (Hospitalization)
  Sender: FDA-Public Use
  Company Number: US-BAYER-2011-032982

PATIENT
  Age: 21 Year
  Sex: Female
  Weight: 54.422 kg

DRUGS (5)
  1. YAZ [Suspect]
  2. MULTI-VITAMIN [Concomitant]
     Dosage: UNK UNK, QD
  3. NSAID'S [Concomitant]
  4. MIGRAINE [Concomitant]
     Indication: MIGRAINE
  5. YAZ [Suspect]
     Indication: PREMENSTRUAL SYNDROME
     Dosage: UNK
     Dates: start: 20060101, end: 20100101

REACTIONS (5)
  - DYSPNOEA [None]
  - CHEST PAIN [None]
  - MENTAL DISORDER [None]
  - DEEP VEIN THROMBOSIS [None]
  - PAIN [None]
